FAERS Safety Report 5013144-0 (Version None)
Quarter: 2006Q2

REPORT INFORMATION
  Report Type: 
  Country: None (occurrence: None)
  Receive Date: 20060530
  Receipt Date: 20060302
  Transmission Date: 20061013
  Serious: Yes (Life-Threatening, Other)
  Sender: FDA-Public Use
  Company Number: US-GLAXOSMITHKLINE-A0596366A

PATIENT
  Age: 35 Year
  Sex: Male

DRUGS (2)
  1. WELLBUTRIN XL [Suspect]
     Indication: DEPRESSION
     Dosage: 150MG PER DAY
     Route: 048
     Dates: start: 20051201, end: 20051215
  2. NO CONCURRENT MEDICATIONS [Concomitant]

REACTIONS (3)
  - HYPERSENSITIVITY [None]
  - SWELLING FACE [None]
  - URTICARIA [None]
